FAERS Safety Report 6956816-0 (Version None)
Quarter: 2010Q3

REPORT INFORMATION
  Report Type: 
  Country: None (occurrence: None)
  Receive Date: 20100830
  Receipt Date: 20100820
  Transmission Date: 20110219
  Serious: Yes (Other)
  Sender: FDA-Public Use
  Company Number: US-ABBOTT-10P-163-0665111-00

PATIENT
  Sex: Female

DRUGS (5)
  1. LUPRON DEPOT [Suspect]
     Indication: PRODUCT USED FOR UNKNOWN INDICATION
  2. HERCEPTIN [Concomitant]
     Indication: PRODUCT USED FOR UNKNOWN INDICATION
  3. TYKERB [Concomitant]
     Indication: PRODUCT USED FOR UNKNOWN INDICATION
  4. XELODA [Concomitant]
     Indication: PRODUCT USED FOR UNKNOWN INDICATION
  5. ZOMETA [Concomitant]
     Indication: PRODUCT USED FOR UNKNOWN INDICATION

REACTIONS (3)
  - FATIGUE [None]
  - HOT FLUSH [None]
  - OOPHORECTOMY [None]
